FAERS Safety Report 6858782-5 (Version None)
Quarter: 2010Q3

REPORT INFORMATION
  Report Type: 
  Country: None (occurrence: None)
  Receive Date: 20100719
  Receipt Date: 20080215
  Transmission Date: 20110219
  Serious: No
  Sender: FDA-Public Use
  Company Number: US-PFIZER INC-2008015204

PATIENT
  Sex: Female
  Weight: 81.6 kg

DRUGS (6)
  1. CHANTIX [Suspect]
     Indication: SMOKING CESSATION THERAPY
     Dates: start: 20080128
  2. WELLBUTRIN [Concomitant]
  3. SERZONE [Concomitant]
  4. TRAZODONE HYDROCHLORIDE [Concomitant]
  5. LESCOL [Concomitant]
  6. KLONOPIN [Concomitant]

REACTIONS (3)
  - COGNITIVE DISORDER [None]
  - DEPRESSION [None]
  - FEELING ABNORMAL [None]
